FAERS Safety Report 8471814-6 (Version None)
Quarter: 2012Q2

REPORT INFORMATION
  Report Type: 
  Country: None (occurrence: None)
  Receive Date: 20120627
  Receipt Date: 20120618
  Transmission Date: 20120825
  Serious: Yes (Hospitalization)
  Sender: FDA-Public Use
  Company Number: US-ASTRAZENECA-2010SE41134

PATIENT
  Age: 65 Year
  Sex: Female

DRUGS (2)
  1. NEXIUM [Suspect]
     Route: 048
  2. SYMBICORT [Suspect]
     Dosage: 160/4.5 UG AT UNKNOWN FREQUENCY
     Route: 055

REACTIONS (4)
  - DRUG DOSE OMISSION [None]
  - MALAISE [None]
  - OEDEMA [None]
  - DYSPEPSIA [None]
